FAERS Safety Report 9328705 (Version 1)
Quarter: 2013Q2

REPORT INFORMATION
  Report Type: Spontaneous
  Country: US (occurrence: US)
  Receive Date: 20130604
  Receipt Date: 20130604
  Transmission Date: 20140414
  Serious: No
  Sender: FDA-Public Use
  Company Number: US-SANOFI-AVENTIS-2012SA064000

PATIENT
  Age: 85 Year
  Sex: Female
  Weight: 63.5 kg

DRUGS (9)
  1. LANTUS SOLOSTAR [Suspect]
     Indication: TYPE 2 DIABETES MELLITUS
     Dosage: 16 UNITS IN MORNING AND 10 UNITS IN EVENING
     Route: 058
     Dates: start: 2010
  2. SOLOSTAR [Suspect]
     Indication: TYPE 2 DIABETES MELLITUS
     Dates: start: 2010
  3. LOSARTAN [Concomitant]
     Indication: BLOOD PRESSURE
     Dates: start: 20120725
  4. SYNTHROID [Concomitant]
     Indication: THYROID DISORDER
  5. GLYBURIDE [Concomitant]
     Indication: DIABETES MELLITUS
  6. REPAGLINIDE [Concomitant]
     Indication: DIABETES MELLITUS
  7. CARVEDILOL [Concomitant]
     Indication: CARDIAC DISORDER
     Dosage: 3/25
  8. DYAZIDE [Concomitant]
     Indication: BLOOD PRESSURE
     Dosage: 37.5
  9. AMLODIPINE BESILATE [Concomitant]
     Indication: BLOOD PRESSURE

REACTIONS (2)
  - Visual impairment [Not Recovered/Not Resolved]
  - Condition aggravated [Not Recovered/Not Resolved]
